FAERS Safety Report 7428192 (Version 3)
Quarter: 2013Q2

REPORT INFORMATION
  Report Type: Spontaneous
  Country: US (occurrence: None)
  Receive Date: 20100223
  Receipt Date: 20130621
  Transmission Date: 20140414
  Serious: Yes (Hospitalization)
  Sender: FDA-Public Use
  Company Number: 004005

PATIENT
  Age: 23 Year
  Sex: Female

DRUGS (1)
  1. CIMZIA [Suspect]
     Indication: CROHN^S DISEASE
     Dosage: (400 MG  1X/ 4 WEEKS) SUBCUTANEOUS
     Route: 058
     Dates: start: 20090328

REACTIONS (5)
  - Crohn^s disease [None]
  - STRESS [None]
  - PAIN [None]
  - FATIGUE [None]
  - NAUSEA [None]
